FAERS Safety Report 10367697 (Version 1)
Quarter: 2014Q1

REPORT INFORMATION
  Report Type: Spontaneous
  Country: US (occurrence: None)
  Receive Date: 20140306
  Receipt Date: 20140306
  Transmission Date: 20141002
  Serious: Yes (Life-Threatening, Hospitalization, Other)
  Sender: FDA-Public Use
  Company Number: 163-21880-12080836

PATIENT
  Age: 82 Year
  Sex: Male

DRUGS (17)
  1. REVLIMID (LENALIDOMIDE) (CAPSULES) [Suspect]
     Indication: PLASMA CELL MYELOMA
     Route: 048
     Dates: start: 20110921, end: 20120625
  2. DEXAMETHASONE (DEXAMETHASONE) [Suspect]
     Indication: PLASMA CELL MYELOMA
     Route: 048
     Dates: start: 20110921, end: 20120529
  3. VALACYCLOVIR (VALACICLOVIR) [Concomitant]
  4. ATIVAN (LORAZEPAM) [Concomitant]
  5. LYRICA (PREGABALIN) [Concomitant]
  6. AMLODIPINE (AMLODIPINE) [Concomitant]
  7. METOPROLOL (METOPROLOL) [Concomitant]
  8. NORMAL SALINE (SODIUM CHLORIDE) [Concomitant]
  9. ZOMETA (ZOLEDRONIC ACID) [Concomitant]
  10. KLOR-CON (POTASSIUM CHLORIDE) [Concomitant]
  11. FUROSEMIDE (FUROSEMIDE) [Concomitant]
  12. LASIX (FUROSEMIDE) [Concomitant]
  13. CORTISONE (CORTISONE) [Concomitant]
  14. BACTRIM (BACTRIM) [Concomitant]
  15. CARDIZEM (DILTIAZEM HYDROCHLORIDE) [Concomitant]
  16. POTASSIUM (POTASSIUM) [Concomitant]
  17. XANAX (ALPRAZOLAM) [Concomitant]

REACTIONS (1)
  - Atrial fibrillation [None]
